FAERS Safety Report 14946563 (Version 1)
Quarter: 2018Q2

REPORT INFORMATION
  Report Type: Report from Study
  Country: CA (occurrence: CA)
  Receive Date: 20180529
  Receipt Date: 20180529
  Transmission Date: 20180711
  Serious: Yes (Hospitalization)
  Sender: FDA-Public Use
  Company Number: CA-JNJFOC-20180531316

PATIENT
  Age: 53 Year
  Sex: Male
  Weight: 75.5 kg

DRUGS (11)
  1. VENTOLIN [Concomitant]
     Active Substance: ALBUTEROL SULFATE
     Route: 065
  2. DEXILANT [Concomitant]
     Active Substance: DEXLANSOPRAZOLE
     Route: 048
  3. BENTYLOL [Concomitant]
     Active Substance: DICYCLOMINE HYDROCHLORIDE
     Route: 048
  4. ACTONEL [Concomitant]
     Active Substance: RISEDRONATE SODIUM
     Route: 065
  5. ATIVAN [Concomitant]
     Active Substance: LORAZEPAM
     Route: 048
  6. PROCET [Concomitant]
     Active Substance: ACETAMINOPHEN\HYDROCODONE BITARTRATE
     Route: 048
  7. LEFLUNOMIDE. [Concomitant]
     Active Substance: LEFLUNOMIDE
     Route: 048
  8. MEDROL [Concomitant]
     Active Substance: METHYLPREDNISOLONE
     Route: 048
  9. FLOVENT [Concomitant]
     Active Substance: FLUTICASONE PROPIONATE
     Route: 065
  10. SIMPONI [Suspect]
     Active Substance: GOLIMUMAB
     Indication: ANKYLOSING SPONDYLITIS
     Dosage: STRENGTH = 50 MG
     Route: 042
     Dates: start: 20170821
  11. SALBUTAMOL [Concomitant]
     Active Substance: ALBUTEROL
     Route: 065

REACTIONS (4)
  - Lower respiratory tract infection bacterial [Recovering/Resolving]
  - Tendonitis [Unknown]
  - Off label use [Unknown]
  - Product use in unapproved indication [Unknown]

NARRATIVE: CASE EVENT DATE: 20170821
